FAERS Safety Report 21085916 (Version 1)
Quarter: 2022Q3

REPORT INFORMATION
  Report Type: Other
  Country: GB (occurrence: GB)
  Receive Date: 20220715
  Receipt Date: 20220715
  Transmission Date: 20221027
  Serious: Yes (Disabling, Other)
  Sender: FDA-Public Use
  Company Number: GB-MHRA-MED-202207041957489040-YTJNL

PATIENT
  Age: 24 Year
  Sex: Female

DRUGS (2)
  1. SERTRALINE [Suspect]
     Active Substance: SERTRALINE HYDROCHLORIDE
     Indication: Depression
     Dosage: 50 MG
     Route: 048
  2. SERTRALINE [Suspect]
     Active Substance: SERTRALINE HYDROCHLORIDE
     Dosage: 100 MG, QD, NORMALLY AT 4 PM
     Route: 048
     Dates: start: 20210101

REACTIONS (3)
  - Hallucination [Not Recovered/Not Resolved]
  - Abnormal dreams [Unknown]
  - Paranoia [Unknown]
